FAERS Safety Report 9670423 (Version 2)
Quarter: 2013Q4

REPORT INFORMATION
  Report Type: Spontaneous
  Country: GB (occurrence: GB)
  Receive Date: 20131105
  Receipt Date: 20131105
  Transmission Date: 20140711
  Serious: Yes (Other)
  Sender: FDA-Public Use
  Company Number: PHHY2009GB071831

PATIENT
  Sex: Male

DRUGS (5)
  1. CLOZARIL [Suspect]
     Indication: BIPOLAR DISORDER
     Dosage: 475 MG, UNK
     Route: 048
     Dates: start: 20090412
  2. PARACETAMOL [Concomitant]
     Indication: PAIN
     Dosage: 1 G, QD
     Route: 048
  3. TRIHEXYPHENIDYL [Concomitant]
     Dosage: 5 MG, QD
     Route: 048
  4. CYPROTERONE ACETATE [Concomitant]
     Indication: IMMOBILE
     Dosage: 100 MG, UNK
     Route: 048
  5. VALPROATE SODIUM [Concomitant]
     Indication: AFFECTIVE DISORDER
     Dosage: 1 G, QD

REACTIONS (3)
  - Deep vein thrombosis [Not Recovered/Not Resolved]
  - Immobile [Unknown]
  - Weight decreased [Unknown]
